FAERS Safety Report 16066072 (Version 1)
Quarter: 2019Q1

REPORT INFORMATION
  Report Type: Spontaneous
  Country: SE (occurrence: SE)
  Receive Date: 20190313
  Receipt Date: 20190313
  Transmission Date: 20190418
  Serious: Yes (Hospitalization)
  Sender: FDA-Public Use
  Company Number: SE-ACCORD-112839

PATIENT
  Age: 74 Year
  Sex: Female

DRUGS (13)
  1. OMEPRAZOLE. [Concomitant]
     Active Substance: OMEPRAZOLE
  2. PRIMPERAN [Concomitant]
     Active Substance: METOCLOPRAMIDE HYDROCHLORIDE
  3. LINAGLIPTIN/METFORMIN [Concomitant]
  4. LEVAXIN [Concomitant]
     Active Substance: LEVOTHYROXINE SODIUM
  5. ZOPICLONE [Concomitant]
     Active Substance: ZOPICLONE
  6. SPIRONOLACTONE. [Suspect]
     Active Substance: SPIRONOLACTONE
     Indication: PRODUCT USED FOR UNKNOWN INDICATION
     Dates: end: 20180910
  7. PRADAXA [Concomitant]
     Active Substance: DABIGATRAN ETEXILATE MESYLATE
  8. DOXAZOSIN [Concomitant]
     Active Substance: DOXAZOSIN\DOXAZOSIN MESYLATE
  9. FUROSEMIDE. [Concomitant]
     Active Substance: FUROSEMIDE
  10. LOSARTAN. [Concomitant]
     Active Substance: LOSARTAN
  11. OXASCAND [Concomitant]
     Active Substance: OXAZEPAM
  12. ALVEDON FORTE [Concomitant]
     Dosage: AEROSOL FOR SPRAYING IN THE MOUTH
  13. ATENOLOL/ATENOLOL HYDROCHLORIDE [Concomitant]

REACTIONS (1)
  - Inappropriate antidiuretic hormone secretion [Recovered/Resolved]

NARRATIVE: CASE EVENT DATE: 20180910
